FAERS Safety Report 14138888 (Version 2)
Quarter: 2018Q1

REPORT INFORMATION
  Report Type: Report from Study
  Country: US (occurrence: US)
  Receive Date: 20171027
  Receipt Date: 20180101
  Transmission Date: 20180508
  Serious: Yes (Other)
  Sender: FDA-Public Use
  Company Number: PHEH2017US034595

PATIENT
  Age: 31 Year
  Sex: Male
  Weight: 77.11 kg

DRUGS (2)
  1. NEURONTIN [Concomitant]
     Active Substance: GABAPENTIN
     Indication: PRODUCT USED FOR UNKNOWN INDICATION
     Route: 065
  2. GLATOPA [Suspect]
     Active Substance: GLATIRAMER ACETATE
     Indication: MULTIPLE SCLEROSIS
     Dosage: 20 MG, QD, ROTATING SITES
     Route: 058
     Dates: start: 20170620, end: 20171020

REACTIONS (15)
  - Loss of consciousness [Recovering/Resolving]
  - Ocular hyperaemia [Recovering/Resolving]
  - Pruritus [Recovering/Resolving]
  - Erythema [Recovering/Resolving]
  - Obstructive airways disorder [Unknown]
  - Dyspnoea [Recovering/Resolving]
  - Fall [Recovering/Resolving]
  - Facial wasting [Recovering/Resolving]
  - Nausea [Recovering/Resolving]
  - Throat tightness [Recovering/Resolving]
  - Dizziness [Recovering/Resolving]
  - Hyperhidrosis [Recovering/Resolving]
  - Panic attack [Recovering/Resolving]
  - Swelling face [Recovering/Resolving]
  - Hypokinesia [Recovering/Resolving]

NARRATIVE: CASE EVENT DATE: 20171019
